FAERS Safety Report 20080077 (Version 6)
Quarter: 2022Q1

REPORT INFORMATION
  Report Type: Spontaneous
  Country: LT (occurrence: LT)
  Receive Date: 20211117
  Receipt Date: 20220111
  Transmission Date: 20220423
  Serious: Yes (Life-Threatening, Hospitalization, Other)
  Sender: FDA-Public Use
  Company Number: LT-KRKA-LT2021K11586LIT

PATIENT
  Age: 50 Year
  Sex: Male

DRUGS (9)
  1. METOPROLOL [Suspect]
     Active Substance: METOPROLOL
     Indication: Arrhythmia
     Dosage: 47.5 MILLIGRAM, BID (47.5 MG, BID)
     Route: 048
  2. METOPROLOL [Suspect]
     Active Substance: METOPROLOL
     Indication: Ventricular arrhythmia
  3. WARFARIN [Suspect]
     Active Substance: WARFARIN
     Indication: Arrhythmia
     Dosage: ACCORDING TO SPA, INR
  4. WARFARIN [Suspect]
     Active Substance: WARFARIN
     Indication: Ventricular arrhythmia
     Dosage: UNK
  5. AMIODARONE [Suspect]
     Active Substance: AMIODARONE
     Indication: Ventricular arrhythmia
     Dosage: UNK
  6. RAMIPRIL [Suspect]
     Active Substance: RAMIPRIL
     Indication: Ventricular arrhythmia
     Dosage: UNK
  7. MELDONIUM [Suspect]
     Active Substance: MELDONIUM
     Indication: Ventricular arrhythmia
     Dosage: 500 MILLIGRAM, QD
  8. TORSEMIDE [Suspect]
     Active Substance: TORSEMIDE
     Indication: Ventricular arrhythmia
     Dosage: UNK
  9. SPIRONOLACTONE [Suspect]
     Active Substance: SPIRONOLACTONE
     Indication: Ventricular arrhythmia
     Dosage: 25 MILLIGRAM, QD

REACTIONS (6)
  - Dyspnoea [Recovered/Resolved]
  - Chest pain [Recovered/Resolved]
  - Alcohol interaction [Recovered/Resolved]
  - Treatment noncompliance [Unknown]
  - Dyspnoea exertional [Unknown]
  - Intentional product misuse [Unknown]

NARRATIVE: CASE EVENT DATE: 20201203
